FAERS Safety Report 25432054 (Version 1)
Quarter: 2025Q2

REPORT INFORMATION
  Report Type: Report from Study
  Country: BR (occurrence: BR)
  Receive Date: 20250613
  Receipt Date: 20250613
  Transmission Date: 20250717
  Serious: Yes (Hospitalization, Other)
  Sender: NOVO NORDISK
  Company Number: BR-NOVOPROD-1451041

PATIENT
  Sex: Female
  Weight: 67 kg

DRUGS (8)
  1. APIDRA [Concomitant]
     Active Substance: INSULIN GLULISINE
     Dosage: 8 IU, BID ( BEFORE BREAKFAST AND BEFORE DINNER)
  2. LOSARTAN [Concomitant]
     Active Substance: LOSARTAN
     Indication: Hypertension
     Dosage: 50 MG, QD (1 TABLET A DAY IN THE MORNING)
  3. METOPROLOL SUCCINATE [Concomitant]
     Active Substance: METOPROLOL SUCCINATE
     Indication: Arrhythmia
     Dosage: 50 MG, QD (1 TABLET DAILY)
  4. GLYXAMBI [Concomitant]
     Active Substance: EMPAGLIFLOZIN\LINAGLIPTIN
     Indication: Type 2 diabetes mellitus
  5. LIVALO [Concomitant]
     Active Substance: PITAVASTATIN CALCIUM
     Indication: Blood cholesterol increased
     Dosage: 2 MG, QD (1 TABLET IN THE EVENING)
  6. GABAPENTIN [Concomitant]
     Active Substance: GABAPENTIN
     Indication: Anxiety
     Dosage: 25 MG, QID (1 CAPSULE )
  7. QUETIAPINE [Concomitant]
     Active Substance: QUETIAPINE
     Indication: Anxiety
     Dosage: 25 MG, QD (1 TABLET AT NIGHT)
  8. XULTOPHY 100/3.6 [Suspect]
     Active Substance: INSULIN DEGLUDEC\LIRAGLUTIDE
     Indication: Type 2 diabetes mellitus
     Dosage: 20 IU, QD (IN THE MORNING)
     Dates: start: 2023

REACTIONS (3)
  - Fatigue [Not Recovered/Not Resolved]
  - Pneumonia [Recovered/Resolved]
  - Urinary tract infection [Not Recovered/Not Resolved]

NARRATIVE: CASE EVENT DATE: 20250412
